FAERS Safety Report 15132751 (Version 3)
Quarter: 2022Q3

REPORT INFORMATION
  Report Type: Report from Study
  Country: JP (occurrence: JP)
  Receive Date: 20180712
  Receipt Date: 20220909
  Transmission Date: 20221027
  Serious: Yes (Death, Life-Threatening, Other)
  Sender: FDA-Public Use
  Company Number: JP-KYOWAKIRIN-2018AKK003078

PATIENT
  Age: 78 Year
  Sex: Male

DRUGS (25)
  1. DARBEPOETIN ALFA [Suspect]
     Active Substance: DARBEPOETIN ALFA
     Indication: Myelodysplastic syndrome
     Dosage: 120 MICROGRAM, QWK
     Route: 058
     Dates: start: 20150320, end: 20150506
  2. DARBEPOETIN ALFA [Suspect]
     Active Substance: DARBEPOETIN ALFA
     Dosage: 120 MICROGRAM, QWK
     Route: 058
     Dates: start: 20150518, end: 20150525
  3. DARBEPOETIN ALFA [Suspect]
     Active Substance: DARBEPOETIN ALFA
     Dosage: 120 MICROGRAM, QWK
     Route: 058
     Dates: start: 20150603, end: 20150624
  4. PREDONINE [Concomitant]
     Active Substance: PREDNISOLONE
     Indication: Pyrexia
     Dosage: 20 MILLIGRAM
     Route: 048
     Dates: end: 20150628
  5. NAPROXEN SODIUM [Concomitant]
     Active Substance: NAPROXEN SODIUM
     Indication: Pyrexia
     Dosage: 300 MILLIGRAM
     Route: 048
     Dates: end: 20150628
  6. HARNAL [Concomitant]
     Active Substance: TAMSULOSIN HYDROCHLORIDE
     Indication: Benign prostatic hyperplasia
     Dosage: 0.2 MILLIGRAM
     Route: 048
     Dates: end: 20150628
  7. GASTER [Concomitant]
     Active Substance: FAMOTIDINE
     Indication: Product used for unknown indication
     Dosage: 20 MILLIGRAM
     Route: 048
     Dates: end: 20150628
  8. METHENOLONE [Concomitant]
     Active Substance: METHENOLONE
     Indication: Myelodysplastic syndrome
     Dosage: 20 MILLIGRAM
     Route: 048
     Dates: end: 20150628
  9. DIFLUCAN [Concomitant]
     Active Substance: FLUCONAZOLE
     Indication: Product used for unknown indication
     Dosage: 100 MILLIGRAM
     Route: 048
     Dates: end: 20150628
  10. TORSEMIDE [Concomitant]
     Active Substance: TORSEMIDE
     Indication: Product used for unknown indication
     Dosage: 4 MILLIGRAM
     Route: 048
     Dates: end: 20150524
  11. HERBALS [Concomitant]
     Active Substance: HERBALS
     Indication: Product used for unknown indication
     Dosage: 9 GRAM
     Route: 048
     Dates: end: 20150628
  12. COR TYZINE [Concomitant]
     Dosage: UNK
     Route: 045
     Dates: end: 20150524
  13. FOLIC ACID [Concomitant]
     Active Substance: FOLIC ACID
     Indication: Folate deficiency
     Dosage: 15 MILLIGRAM
     Route: 048
     Dates: start: 20150403, end: 20150628
  14. METHYLCOBALAMIN [Concomitant]
     Active Substance: METHYLCOBALAMIN
     Indication: Vitamin B12 deficiency
     Dosage: 500 MICROGRAM
     Route: 065
     Dates: start: 20150403, end: 20150417
  15. DESFERAL [Concomitant]
     Active Substance: DEFEROXAMINE MESYLATE
     Indication: Product used for unknown indication
     Dosage: UNK
     Route: 065
     Dates: start: 20150410, end: 20150617
  16. AUGMENTIN [Concomitant]
     Active Substance: AMOXICILLIN\CLAVULANATE POTASSIUM
     Indication: Bronchitis
     Dosage: 750 MILLIGRAM
     Route: 048
     Dates: start: 20150508, end: 20150514
  17. ARICEPT [Concomitant]
     Active Substance: DONEPEZIL HYDROCHLORIDE
     Indication: Product used for unknown indication
     Dosage: 3 MILLIGRAM
     Route: 048
     Dates: start: 20150610, end: 20150628
  18. HUMULIN R [Concomitant]
     Active Substance: INSULIN HUMAN
     Indication: Diabetes mellitus
     Dosage: 20 INTERNATIONAL UNIT
     Route: 065
     Dates: start: 20150617, end: 20150619
  19. CEFTRIAXONE SODIUM [Concomitant]
     Active Substance: CEFTRIAXONE SODIUM
     Indication: Bacterial infection
     Dosage: 1 GRAM
     Route: 065
     Dates: start: 20150617, end: 20150619
  20. KENKETU GLOVENIN-I [Concomitant]
     Active Substance: HUMAN IMMUNOGLOBULIN G
     Indication: Hypogammaglobulinaemia
     Dosage: 5 GRAM
     Route: 065
     Dates: start: 20150619, end: 20150619
  21. KENKETU GLOVENIN-I [Concomitant]
     Active Substance: HUMAN IMMUNOGLOBULIN G
     Indication: Septic shock
     Dosage: 5 GRAM
     Route: 065
     Dates: start: 20150629, end: 20150629
  22. CIPROFLOXACIN [Concomitant]
     Active Substance: CIPROFLOXACIN
     Indication: Bacterial infection
     Dosage: 400 MILLIGRAM
     Route: 048
     Dates: start: 20150617, end: 20150628
  23. ZOSYN [Concomitant]
     Active Substance: PIPERACILLIN SODIUM\TAZOBACTAM SODIUM
     Indication: Sepsis
     Dosage: 4.5 GRAM
     Route: 065
     Dates: start: 20150629, end: 20150629
  24. SOLU-CORTEF [Concomitant]
     Active Substance: HYDROCORTISONE SODIUM SUCCINATE
     Indication: Septic shock
     Dosage: 200 MILLIGRAM
     Route: 065
     Dates: start: 20150629, end: 20150629
  25. DOPAMINE HYDROCHLORIDE [Concomitant]
     Active Substance: DOPAMINE HYDROCHLORIDE
     Indication: Shock
     Dosage: UNK
     Route: 065
     Dates: start: 20150629, end: 20150629

REACTIONS (7)
  - Septic shock [Fatal]
  - Bacterial infection [Not Recovered/Not Resolved]
  - Hypogammaglobulinaemia [Not Recovered/Not Resolved]
  - Infection [Not Recovered/Not Resolved]
  - Steroid diabetes [Not Recovered/Not Resolved]
  - Bronchitis [Recovered/Resolved]
  - Urinary incontinence [Not Recovered/Not Resolved]

NARRATIVE: CASE EVENT DATE: 20150508
